FAERS Safety Report 25863790 (Version 1)
Quarter: 2025Q3

REPORT INFORMATION
  Report Type: Report from Study
  Country: EU (occurrence: EU)
  Receive Date: 20250930
  Receipt Date: 20250930
  Transmission Date: 20251021
  Serious: Yes (Death, Other)
  Sender: PFIZER
  Company Number: EU-PFIZER INC-PV202500110455

PATIENT
  Age: 64 Year
  Sex: Female

DRUGS (1)
  1. ELRANATAMAB [Suspect]
     Active Substance: ELRANATAMAB
     Indication: Plasma cell myeloma recurrent
     Route: 058
     Dates: start: 202302, end: 2025

REACTIONS (4)
  - Immunosuppression [Fatal]
  - Progressive multifocal leukoencephalopathy [Fatal]
  - Human polyomavirus infection [Fatal]
  - Infection [Unknown]

NARRATIVE: CASE EVENT DATE: 20230101
